FAERS Safety Report 20924776 (Version 2)
Quarter: 2022Q2

REPORT INFORMATION
  Report Type: Report from Study
  Country: AR (occurrence: AR)
  Receive Date: 20220607
  Receipt Date: 20220608
  Transmission Date: 20220720
  Serious: Yes (Other)
  Sender: FDA-Public Use
  Company Number: AR-NOVARTISPH-NVSC2022AR128734

PATIENT
  Sex: Female

DRUGS (2)
  1. TEGRETOL [Suspect]
     Active Substance: CARBAMAZEPINE
     Indication: Seizure
     Dosage: 3 DOSAGE FORM, QD, (400), (START DATE: APPROXIMATELY 6 YEARS AGO)
     Route: 065
  2. TRILEPTAL [Suspect]
     Active Substance: OXCARBAZEPINE
     Indication: Seizure
     Dosage: 2 DOSAGE FORM, QD, (STARTED 9 YEARS AGO)
     Route: 065

REACTIONS (7)
  - Syncope [Not Recovered/Not Resolved]
  - Diabetes mellitus [Unknown]
  - Petit mal epilepsy [Unknown]
  - Somnolence [Not Recovered/Not Resolved]
  - Abdominal discomfort [Unknown]
  - Fatigue [Unknown]
  - Headache [Unknown]
